FAERS Safety Report 8593843-4 (Version None)
Quarter: 2012Q3

REPORT INFORMATION
  Report Type: 
  Country: None (occurrence: None)
  Receive Date: 20120814
  Receipt Date: 20120809
  Transmission Date: 20120928
  Serious: Yes (Death)
  Sender: FDA-Public Use
  Company Number: PHHY2012MX070103

PATIENT
  Sex: Male

DRUGS (3)
  1. LOPRESSOR [Concomitant]
     Dosage: 1 DF, DAILY
     Route: 048
  2. DIOVAN [Suspect]
     Indication: HYPERTENSION
     Dates: start: 20120501
  3. DIOVAN HCT [Suspect]
     Indication: HYPERTENSION
     Dosage: 1 DF, (160/12.5 MG) DAILY
     Dates: start: 20070601, end: 20120501

REACTIONS (1)
  - DEATH [None]
